FAERS Safety Report 10469127 (Version 1)
Quarter: 2014Q3

REPORT INFORMATION
  Report Type: Spontaneous
  Country: US (occurrence: None)
  Receive Date: 20140922
  Receipt Date: 20140922
  Transmission Date: 20150326
  Serious: No
  Sender: FDA-Public Use
  Company Number: None

PATIENT
  Age: 23 Year
  Sex: Male

DRUGS (16)
  1. FECAL MICROBIOTA [Suspect]
     Active Substance: FECAL MICROBIOTA
     Indication: CLOSTRIDIUM DIFFICILE COLITIS
     Dosage: 25ML, ONCE, NG TUBE
     Dates: start: 20140626
  2. BACLOFEN. [Concomitant]
     Active Substance: BACLOFEN
  3. LORATADINE. [Concomitant]
     Active Substance: LORATADINE
  4. MULTIVITAMIN [Concomitant]
     Active Substance: VITAMINS
  5. OXANDROLONE. [Concomitant]
     Active Substance: OXANDROLONE
  6. FECAL MICROBIOTA [Suspect]
     Active Substance: FECAL MICROBIOTA
     Indication: DISEASE RECURRENCE
     Dosage: 25ML, ONCE, NG TUBE
     Dates: start: 20140626
  7. DANTROLENE [Concomitant]
     Active Substance: DANTROLENE
  8. OXYCODONE [Concomitant]
     Active Substance: OXYCODONE
  9. DOCUSATE [Concomitant]
     Active Substance: DOCUSATE
  10. LARAZEPAM [Concomitant]
  11. FAMOTIDINE. [Concomitant]
     Active Substance: FAMOTIDINE
  12. SENNA [Concomitant]
     Active Substance: SENNA LEAF\SENNOSIDES\SENNOSIDES A AND B
  13. BISACODYL. [Concomitant]
     Active Substance: BISACODYL
  14. ONDANSETRON [Concomitant]
     Active Substance: ONDANSETRON
  15. PROMETHAZINE [Concomitant]
     Active Substance: PROMETHAZINE\PROMETHAZINE HYDROCHLORIDE
  16. LEVALBUTEROL [Concomitant]
     Active Substance: LEVALBUTEROL

REACTIONS (4)
  - Giardiasis [None]
  - Disease recurrence [None]
  - False positive investigation result [None]
  - Clostridium difficile infection [None]

NARRATIVE: CASE EVENT DATE: 20140731
